FAERS Safety Report 6652556-6 (Version None)
Quarter: 2010Q1

REPORT INFORMATION
  Report Type: 
  Country: None (occurrence: None)
  Receive Date: 20100325
  Receipt Date: 20100325
  Transmission Date: 20100710
  Serious: No
  Sender: FDA-Public Use
  Company Number: None

PATIENT
  Sex: Male
  Weight: 22.6799 kg

DRUGS (2)
  1. KEPPRA [Suspect]
     Indication: GRAND MAL CONVULSION
     Dosage: 250MG BID PO
     Route: 048
     Dates: start: 20100202, end: 20100304
  2. KEPPRA [Suspect]
     Indication: PETIT MAL EPILEPSY
     Dosage: 250MG BID PO
     Route: 048
     Dates: start: 20100202, end: 20100304

REACTIONS (10)
  - AFFECT LABILITY [None]
  - AFFECTIVE DISORDER [None]
  - AGGRESSION [None]
  - DEPRESSION [None]
  - GRAND MAL CONVULSION [None]
  - HOSTILITY [None]
  - MORBID THOUGHTS [None]
  - PERSONALITY CHANGE [None]
  - PETIT MAL EPILEPSY [None]
  - SUICIDAL IDEATION [None]
